FAERS Safety Report 12606989 (Version 1)
Quarter: 2016Q3

REPORT INFORMATION
  Report Type: Spontaneous
  Country: US (occurrence: US)
  Receive Date: 20160729
  Receipt Date: 20160729
  Transmission Date: 20161109
  Serious: No
  Sender: FDA-Public Use
  Company Number: US-BAYER-2016-147709

PATIENT
  Age: 81 Year
  Sex: Female
  Weight: 61.22 kg

DRUGS (3)
  1. HYDROCODONE [Concomitant]
     Active Substance: HYDROCODONE
  2. ONE A DAY [B12,D2,B3,B6,RETINOL,B2,NA+ ASCORB,B1 MONONITR] [Concomitant]
     Indication: VITAMIN SUPPLEMENTATION
  3. MIRALAX [Suspect]
     Active Substance: POLYETHYLENE GLYCOL 3350
     Indication: CONSTIPATION
     Dosage: 0.25 DF, UNK
     Route: 048
     Dates: start: 2011

REACTIONS (1)
  - Product use issue [None]

NARRATIVE: CASE EVENT DATE: 2011
